FAERS Safety Report 7796884-X (Version None)
Quarter: 2011Q4

REPORT INFORMATION
  Report Type: 
  Country: None (occurrence: None)
  Receive Date: 20111005
  Receipt Date: 20110929
  Transmission Date: 20120403
  Serious: Yes (Hospitalization)
  Sender: FDA-Public Use
  Company Number: US-GENZYME-CAMP-1000274

PATIENT
  Sex: Female
  Weight: 62.585 kg

DRUGS (15)
  1. MINOCYCLINE HCL [Concomitant]
     Indication: ROSACEA
     Dosage: 90 MG, UNK
     Route: 065
  2. TRIAMCINOLONE [Concomitant]
     Indication: SEASONAL ALLERGY
     Dosage: UNK
     Route: 061
  3. ALEMTUZUMAB [Suspect]
     Indication: MULTIPLE SCLEROSIS
     Dosage: 24 MG, QDX5
     Route: 042
     Dates: start: 20090330, end: 20090403
  4. PREVACID [Concomitant]
     Indication: GASTROOESOPHAGEAL REFLUX DISEASE
     Dosage: 30 MG, BID
     Route: 048
  5. ACYCLOVIR [Concomitant]
     Indication: PROPHYLAXIS
     Dosage: 200 MG, BID
     Route: 048
     Dates: start: 20090330, end: 20090424
  6. CITALOPRAM HYDROBROMIDE [Concomitant]
     Indication: DEPRESSION
     Dosage: 40 MG, QD
     Route: 048
  7. HYDROXYZINE [Concomitant]
     Indication: PROPHYLAXIS
     Dosage: 25 MG, PRN
     Route: 048
     Dates: start: 20090330
  8. FIBERCON [Concomitant]
     Indication: PRODUCT USED FOR UNKNOWN INDICATION
     Dosage: UNK
     Route: 048
  9. ESTRADIOL [Concomitant]
     Indication: PRODUCT USED FOR UNKNOWN INDICATION
     Dosage: 2 MG, 2X/W
     Route: 061
  10. BACLOFEN [Concomitant]
     Indication: MUSCLE SPASTICITY
     Dosage: 10 MG, 1/2 TABLET, PRN
     Route: 048
  11. METOCLOPRAMIDE [Concomitant]
     Indication: PROPHYLAXIS
     Dosage: 5 MG, PRN
     Route: 048
     Dates: start: 20090330
  12. METHYLPREDNISOLONE [Concomitant]
     Indication: PROPHYLAXIS
     Dosage: 1.0 G, QDX3
     Route: 042
     Dates: start: 20090330, end: 20090401
  13. LISINOPRIL [Concomitant]
     Indication: PRODUCT USED FOR UNKNOWN INDICATION
     Dosage: 5 MG, QD
     Route: 065
  14. AMANTADINE HCL [Concomitant]
     Indication: PRODUCT USED FOR UNKNOWN INDICATION
     Dosage: 100 MG, TID
     Route: 065
  15. PROMETRIUM [Concomitant]
     Indication: PRODUCT USED FOR UNKNOWN INDICATION
     Dosage: 200 MG, UNK
     Route: 048

REACTIONS (6)
  - FEBRILE NEUTROPENIA [None]
  - ABASIA [None]
  - BLOOD POTASSIUM DECREASED [None]
  - OROPHARYNGEAL BLISTERING [None]
  - NAUSEA [None]
  - GAIT DISTURBANCE [None]
